FAERS Safety Report 25050438 (Version 1)
Quarter: 2025Q1

REPORT INFORMATION
  Report Type: Spontaneous
  Country: ES (occurrence: ES)
  Receive Date: 20250307
  Receipt Date: 20250307
  Transmission Date: 20250408
  Serious: Yes (Other)
  Sender: MYLAN
  Company Number: ES-MYLANLABS-2025M1019624

PATIENT
  Age: 69 Year
  Sex: Male

DRUGS (12)
  1. METHOTREXATE [Suspect]
     Active Substance: METHOTREXATE
     Indication: Scleritis
  2. CYCLOSPORINE [Suspect]
     Active Substance: CYCLOSPORINE
     Indication: VEXAS syndrome
  3. MYCOPHENOLATE MOFETIL [Suspect]
     Active Substance: MYCOPHENOLATE MOFETIL
     Indication: VEXAS syndrome
  4. TACROLIMUS [Suspect]
     Active Substance: TACROLIMUS
     Indication: VEXAS syndrome
  5. PREDNISONE [Suspect]
     Active Substance: PREDNISONE
     Indication: Scleritis
  6. PREDNISONE [Suspect]
     Active Substance: PREDNISONE
     Indication: Neutrophilic dermatosis
  7. ETANERCEPT [Suspect]
     Active Substance: ETANERCEPT
     Indication: VEXAS syndrome
  8. RITUXIMAB [Suspect]
     Active Substance: RITUXIMAB
     Indication: VEXAS syndrome
  9. TOFACITINIB [Suspect]
     Active Substance: TOFACITINIB
     Indication: VEXAS syndrome
  10. ERYTHROPOIETIN [Concomitant]
     Active Substance: ERYTHROPOIETIN
     Indication: Anaemia macrocytic
  11. FOLIC ACID [Concomitant]
     Active Substance: FOLIC ACID
     Indication: Anaemia macrocytic
  12. ACENOCOUMAROL [Concomitant]
     Active Substance: ACENOCOUMAROL
     Indication: Anticoagulant therapy

REACTIONS (4)
  - Hypomagnesaemia [Unknown]
  - Drug ineffective [Unknown]
  - Off label use [Unknown]
  - Drug intolerance [Unknown]

NARRATIVE: CASE EVENT DATE: 20190101
